FAERS Safety Report 11914212 (Version 1)
Quarter: 2016Q1

REPORT INFORMATION
  Report Type: Spontaneous
  Country: US (occurrence: US)
  Receive Date: 20160113
  Receipt Date: 20160113
  Transmission Date: 20160526
  Serious: Yes (Hospitalization, Other)
  Sender: FDA-Public Use
  Company Number: US-BAYER-2016-004813

PATIENT
  Age: 81 Year
  Sex: Male
  Weight: 71.66 kg

DRUGS (13)
  1. ATORVASTATIN [Concomitant]
     Active Substance: ATORVASTATIN
     Indication: BLOOD CHOLESTEROL
     Dosage: 40 MG, QD
  2. RANEXA [Concomitant]
     Active Substance: RANOLAZINE
     Indication: CHEST PAIN
     Dosage: 500 MG, MORNING AND NIGHT
     Dates: start: 201509
  3. LOSARTAN. [Concomitant]
     Active Substance: LOSARTAN
     Indication: BLOOD PRESSURE MANAGEMENT
     Dosage: 25 MG, HS
  4. TYLENOL [Interacting]
     Active Substance: ACETAMINOPHEN
     Indication: MUSCLE SPASMS
     Dosage: 1000 MG, HS
     Dates: start: 2014
  5. BENADRYL [Suspect]
     Active Substance: DIPHENHYDRAMINE HYDROCHLORIDE
     Indication: MULTIPLE ALLERGIES
     Dosage: UNK, PRN
  6. FISH OIL [Concomitant]
     Active Substance: FISH OIL
     Dosage: 1 CAPSULE IN THE MORNING AND ONE AT NIGHT
  7. ATORVASTATIN [Concomitant]
     Active Substance: ATORVASTATIN
     Indication: BLOOD CHOLESTEROL
     Dosage: 20 MG, QD
  8. AMLODIPIN [Concomitant]
     Active Substance: AMLODIPINE BESYLATE
     Indication: BLOOD PRESSURE MANAGEMENT
     Dosage: 2.5 MG, QD
     Dates: start: 201509
  9. VITAMIN D [Concomitant]
     Active Substance: CHOLECALCIFEROL
     Dosage: 50,000 EVERY TWO WEEKS
  10. METOPROLOL. [Concomitant]
     Active Substance: METOPROLOL
     Indication: BLOOD PRESSURE MANAGEMENT
     Dosage: 12.5 MG, BID
  11. CLOPIDOGREL [Interacting]
     Active Substance: CLOPIDOGREL BISULFATE
     Dosage: 75 MG, QD
     Route: 048
     Dates: start: 201412
  12. BAYER LOW DOSE [Interacting]
     Active Substance: ASPIRIN
     Indication: THROMBOSIS PROPHYLAXIS
     Dosage: 81 MG, QD
  13. GALANTAMINE. [Concomitant]
     Active Substance: GALANTAMINE
     Indication: MEMORY IMPAIRMENT
     Dosage: 8 MG, BID
     Route: 048

REACTIONS (6)
  - Gastric ulcer haemorrhage [Recovered/Resolved]
  - Labelled drug-drug interaction medication error [None]
  - Haemorrhagic anaemia [Recovering/Resolving]
  - Oesophagitis [Recovered/Resolved]
  - Faeces discoloured [Recovering/Resolving]
  - Product use issue [None]

NARRATIVE: CASE EVENT DATE: 20151021
